FAERS Safety Report 13192801 (Version 4)
Quarter: 2017Q1

REPORT INFORMATION
  Report Type: Report from Study
  Country: CA (occurrence: CA)
  Receive Date: 20170207
  Receipt Date: 20170314
  Transmission Date: 20170428
  Serious: Yes (Death, Other)
  Sender: FDA-Public Use
  Company Number: PHHO2017CA002576

PATIENT
  Age: 77 Year
  Sex: Female
  Weight: 114 kg

DRUGS (1)
  1. ACZ885 [Suspect]
     Active Substance: CANAKINUMAB
     Indication: CARDIOVASCULAR EVENT PROPHYLAXIS
     Dosage: 50 MG, UNK
     Route: 058
     Dates: start: 20131106, end: 20161201

REACTIONS (1)
  - Malignant peritoneal neoplasm [Fatal]

NARRATIVE: CASE EVENT DATE: 20161220
